FAERS Safety Report 7306916-0 (Version None)
Quarter: 2011Q1

REPORT INFORMATION
  Report Type: 
  Country: None (occurrence: None)
  Receive Date: 20110223
  Receipt Date: 20110208
  Transmission Date: 20110831
  Serious: No
  Sender: FDA-Public Use
  Company Number: US-BIOGENIDEC-2010BI037362

PATIENT
  Age: 51 Year
  Sex: Female

DRUGS (1)
  1. TYSABRI [Suspect]
     Indication: MULTIPLE SCLEROSIS
     Route: 042
     Dates: start: 20100818

REACTIONS (6)
  - GASTROINTESTINAL DISORDER [None]
  - GAIT DISTURBANCE [None]
  - FATIGUE [None]
  - DRUG INEFFECTIVE [None]
  - PAIN [None]
  - HYPOAESTHESIA [None]
